FAERS Safety Report 5210797-9 (Version None)
Quarter: 2006Q4

REPORT INFORMATION
  Report Type: 
  Country: None (occurrence: None)
  Receive Date: 20061101
  Receipt Date: 20060728
  Transmission Date: 20070319
  Serious: No
  Sender: FDA-Public Use
  Company Number: 2006PV018480

PATIENT
  Age: 68 Year
  Sex: Female

DRUGS (3)
  1. SYMLIN [Suspect]
     Indication: DIABETES MELLITUS NON-INSULIN-DEPENDENT
     Dosage: 60 MCG;TID;SC
     Route: 058
     Dates: start: 20060728
  2. HUMALOG [Concomitant]
  3. LANTUS [Concomitant]

REACTIONS (1)
  - BLOOD GLUCOSE INCREASED [None]
